FAERS Safety Report 6400324-2 (Version None)
Quarter: 2009Q4

REPORT INFORMATION
  Report Type: 
  Country: None (occurrence: None)
  Receive Date: 20091014
  Receipt Date: 20091005
  Transmission Date: 20100525
  Serious: Yes (Other)
  Sender: FDA-Public Use
  Company Number: US-JNJCH-2009026552

PATIENT
  Age: 71 Year
  Sex: Female
  Weight: 61.2 kg

DRUGS (1)
  1. BENGAY ULTRA STRENGTH PATCH [Suspect]
     Indication: MUSCLE STRAIN
     Dosage: TEXT:TWO PATCHES AT A TIME ONCE A DAY
     Route: 061
     Dates: start: 20090930, end: 20090930

REACTIONS (2)
  - APPLICATION SITE BURN [None]
  - APPLICATION SITE VESICLES [None]
